FAERS Safety Report 26151581 (Version 1)
Quarter: 2025Q4

REPORT INFORMATION
  Report Type: Report from Study
  Country: US (occurrence: US)
  Receive Date: 20251212
  Receipt Date: 20251212
  Transmission Date: 20260118
  Serious: Yes (Other)
  Sender: NOVARTIS
  Company Number: US-002147023-NVSC2025US148617

PATIENT
  Sex: Female

DRUGS (1)
  1. KESIMPTA [Suspect]
     Active Substance: OFATUMUMAB
     Indication: Multiple sclerosis
     Dosage: 20 MG, QW (ONCE A WEEK FOR 3 WEEKS, SKIP WEEK 4, WEEK 5 START MONTHLY)
     Route: 058
     Dates: start: 20250620

REACTIONS (7)
  - Multiple sclerosis [Unknown]
  - Memory impairment [Unknown]
  - Fatigue [Unknown]
  - Visual impairment [Not Recovered/Not Resolved]
  - Laziness [Unknown]
  - Asthenia [Unknown]
  - Feeling abnormal [Unknown]
